FAERS Safety Report 19837779 (Version 1)
Quarter: 2021Q3

REPORT INFORMATION
  Report Type: Spontaneous
  Country: US (occurrence: US)
  Receive Date: 20210914
  Receipt Date: 20210914
  Transmission Date: 20211014
  Serious: No
  Sender: FDA-Public Use
  Company Number: None

PATIENT
  Age: 52 Year
  Sex: Female

DRUGS (1)
  1. ALIROCUMAB [Suspect]
     Active Substance: ALIROCUMAB
     Indication: HYPERLIPIDAEMIA
     Dates: start: 20180104, end: 20180420

REACTIONS (5)
  - Swelling [None]
  - Rash pruritic [None]
  - Myalgia [None]
  - Dyspnoea exertional [None]
  - Arthralgia [None]

NARRATIVE: CASE EVENT DATE: 20180423
